FAERS Safety Report 6335096-3 (Version None)
Quarter: 2009Q3

REPORT INFORMATION
  Report Type: 
  Country: None (occurrence: None)
  Receive Date: 20090831
  Receipt Date: 20090821
  Transmission Date: 20100115
  Serious: Yes (Other)
  Sender: FDA-Public Use
  Company Number: RO-ROCHE-652108

PATIENT
  Age: 60 Year
  Sex: Female

DRUGS (4)
  1. BONIVA [Suspect]
     Indication: OSTEOPOROSIS POSTMENOPAUSAL
     Route: 042
     Dates: start: 20090710, end: 20090812
  2. CALCIUM [Concomitant]
     Indication: OSTEOPOROSIS POSTMENOPAUSAL
  3. VITAMIN D [Concomitant]
     Indication: OSTEOPOROSIS POSTMENOPAUSAL
     Dosage: DRUG REPORTED AS VITAMIN D.
  4. VITAMIN D [Concomitant]

REACTIONS (1)
  - OEDEMA PERIPHERAL [None]
